FAERS Safety Report 19626185 (Version 1)
Quarter: 2021Q3

REPORT INFORMATION
  Report Type: Spontaneous
  Country: NO (occurrence: NO)
  Receive Date: 20210729
  Receipt Date: 20210729
  Transmission Date: 20211014
  Serious: Yes (Hospitalization)
  Sender: FDA-Public Use
  Company Number: NO-TEVA-2021-NO-1937101

PATIENT
  Age: 24 Year
  Sex: Female

DRUGS (1)
  1. ESCITALOPRAM [Suspect]
     Active Substance: ESCITALOPRAM OXALATE
     Indication: DEPRESSION
     Dosage: 20 MG
     Route: 048
     Dates: start: 20180709, end: 20210707

REACTIONS (5)
  - Anhedonia [Recovering/Resolving]
  - Tremor [Recovering/Resolving]
  - Restlessness [Recovering/Resolving]
  - Disturbance in attention [Recovering/Resolving]
  - Antidepressant discontinuation syndrome [Recovering/Resolving]

NARRATIVE: CASE EVENT DATE: 20210708
